FAERS Safety Report 7483071-8 (Version None)
Quarter: 2011Q2

REPORT INFORMATION
  Report Type: 
  Country: None (occurrence: None)
  Receive Date: 20110516
  Receipt Date: 20110509
  Transmission Date: 20111010
  Serious: Yes (Other)
  Sender: FDA-Public Use
  Company Number: FR-SANOFI-AVENTIS-2011SA017422

PATIENT
  Sex: Male
  Weight: 70 kg

DRUGS (12)
  1. LASIX [Concomitant]
  2. PLAVIX [Suspect]
     Route: 048
     Dates: start: 19990101, end: 20100101
  3. ATROPINE [Concomitant]
     Dates: start: 20030801
  4. MEDIATOR [Concomitant]
     Indication: TYPE 2 DIABETES MELLITUS
     Route: 048
     Dates: start: 19950101, end: 20090901
  5. RISORDAN [Concomitant]
  6. SOTALOL HCL [Concomitant]
     Dates: end: 20030801
  7. PREVISCAN [Concomitant]
     Route: 048
  8. AMARYL [Concomitant]
     Dosage: DOSE:1 UNIT(S)
     Route: 048
  9. NITROGLYCERIN [Concomitant]
     Route: 062
  10. ATARAX [Concomitant]
     Route: 048
  11. LOVENOX [Concomitant]
     Dates: start: 20030801
  12. ATORVASTATIN CALCIUM [Concomitant]
     Route: 048

REACTIONS (17)
  - LEUKOCYTOCLASTIC VASCULITIS [None]
  - CARDIOMYOPATHY [None]
  - PULMONARY OEDEMA [None]
  - PULMONARY HYPERTENSION [None]
  - MITRAL VALVE INCOMPETENCE [None]
  - MUSCLE ATROPHY [None]
  - CARDIAC FAILURE [None]
  - LEFT ATRIAL DILATATION [None]
  - ARTERITIS OBLITERANS [None]
  - CAROTID ARTERIOSCLEROSIS [None]
  - MYOCARDIAL INFARCTION [None]
  - TACHYCARDIA [None]
  - AORTIC VALVE INCOMPETENCE [None]
  - ATRIAL FIBRILLATION [None]
  - MUSCULOSKELETAL DISORDER [None]
  - HYPERTHYROIDISM [None]
  - VERTEBRAL ARTERY OCCLUSION [None]
